FAERS Safety Report 9533799 (Version 2)
Quarter: 2013Q3

REPORT INFORMATION
  Report Type: Spontaneous
  Country: GB (occurrence: GB)
  Receive Date: 20130918
  Receipt Date: 20130918
  Transmission Date: 20140515
  Serious: Yes (Hospitalization)
  Sender: FDA-Public Use
  Company Number: GB-BRISTOL-MYERS SQUIBB COMPANY-19237072

PATIENT
  Age: 89 Year
  Sex: Male

DRUGS (1)
  1. ELIQUIS [Suspect]
     Indication: ATRIAL FIBRILLATION
     Dosage: ONCE IN 1-14DY
     Route: 048
     Dates: start: 2013

REACTIONS (1)
  - Transient ischaemic attack [Unknown]
